FAERS Safety Report 11203803 (Version 1)
Quarter: 2015Q2

REPORT INFORMATION
  Report Type: Spontaneous
  Country: DE (occurrence: DE)
  Receive Date: 20150619
  Receipt Date: 20150619
  Transmission Date: 20150821
  Serious: Yes (Life-Threatening, Hospitalization)
  Sender: FDA-Public Use
  Company Number: DE-ABBVIE-15P-062-1410790-00

PATIENT
  Age: 72 Year
  Sex: Male
  Weight: 75 kg

DRUGS (3)
  1. EXVIERA [Suspect]
     Active Substance: DASABUVIR
     Indication: CHRONIC HEPATITIS C
     Route: 048
     Dates: start: 201505
  2. JANUMET [Concomitant]
     Active Substance: METFORMIN HYDROCHLORIDE\SITAGLIPTIN PHOSPHATE
     Indication: DIABETES MELLITUS
  3. VIEKIRAX [Suspect]
     Active Substance: OMBITASVIR\PARITAPREVIR\RITONAVIR
     Indication: CHRONIC HEPATITIS C
     Route: 048
     Dates: start: 201505

REACTIONS (4)
  - Coronary artery occlusion [Unknown]
  - Myocardial infarction [Recovering/Resolving]
  - Left ventricular dysfunction [Unknown]
  - Coronary artery stenosis [Unknown]

NARRATIVE: CASE EVENT DATE: 20150614
